FAERS Safety Report 4508156-7 (Version None)
Quarter: 2004Q4

REPORT INFORMATION
  Report Type: 
  Country: None (occurrence: None)
  Receive Date: 20041123
  Receipt Date: 20031028
  Transmission Date: 20050328
  Serious: No
  Sender: FDA-Public Use
  Company Number: US-GLAXOSMITHKLINE-A0432143A

PATIENT
  Age: 36 Year
  Sex: Female

DRUGS (7)
  1. WELLBUTRIN [Suspect]
     Dosage: 150MG PER DAY
     Route: 048
     Dates: start: 20031025
  2. OXYCONTIN [Concomitant]
  3. OXYCODONE IMMEDIATE RELEASE [Concomitant]
  4. CIPRO [Concomitant]
  5. ASACOL [Concomitant]
  6. BENTYL [Concomitant]
  7. VALIUM [Concomitant]

REACTIONS (5)
  - AGITATION [None]
  - CHILLS [None]
  - DIZZINESS [None]
  - HYPERHIDROSIS [None]
  - INSOMNIA [None]
